FAERS Safety Report 19966514 (Version 2)
Quarter: 2024Q4

REPORT INFORMATION
  Report Type: Spontaneous
  Country: US (occurrence: US)
  Receive Date: 20211018
  Receipt Date: 20241124
  Transmission Date: 20250115
  Serious: No
  Sender: SANOFI AVENTIS
  Company Number: US-SA-SAC20211014000118

PATIENT
  Sex: Female
  Weight: 67.27 kg

DRUGS (14)
  1. DUPIXENT [Suspect]
     Active Substance: DUPILUMAB
     Indication: Dermatitis atopic
     Dosage: 300 MG, QOW
     Route: 058
  2. DUPIXENT [Suspect]
     Active Substance: DUPILUMAB
     Indication: Dermatitis allergic
  3. LAMICTAL [Concomitant]
     Active Substance: LAMOTRIGINE
  4. TRETINOIN [Concomitant]
     Active Substance: TRETINOIN
  5. PANTOPRAZOLE SODIUM [Concomitant]
     Active Substance: PANTOPRAZOLE SODIUM
  6. AZITHROMYCIN [Concomitant]
     Active Substance: AZITHROMYCIN
  7. LEXAPRO [Concomitant]
     Active Substance: ESCITALOPRAM OXALATE
  8. MONTELUKAST SODIUM [Concomitant]
     Active Substance: MONTELUKAST SODIUM
  9. IPRATROPIUM BROMIDE [Concomitant]
     Active Substance: IPRATROPIUM BROMIDE
  10. GABAPENTIN [Concomitant]
     Active Substance: GABAPENTIN
  11. AZELASTINE HYDROCHLORIDE [Concomitant]
     Active Substance: AZELASTINE HYDROCHLORIDE
  12. DIAZEPAM [Concomitant]
     Active Substance: DIAZEPAM
  13. FLUTICASONE PROPIONATE [Concomitant]
     Active Substance: FLUTICASONE PROPIONATE
  14. METHYLPHENIDATE [Concomitant]
     Active Substance: METHYLPHENIDATE

REACTIONS (6)
  - Pruritus [Unknown]
  - Injection site pain [Unknown]
  - Rash [Unknown]
  - Product dose omission issue [Unknown]
  - Product preparation error [Unknown]
  - Therapeutic response shortened [Unknown]
